FAERS Safety Report 21902255 (Version 1)
Quarter: 2023Q1

REPORT INFORMATION
  Report Type: Spontaneous
  Country: US (occurrence: None)
  Receive Date: 20230124
  Receipt Date: 20230124
  Transmission Date: 20230417
  Serious: No
  Sender: FDA-Public Use
  Company Number: US-USWM, LLC-UWM202203-000005

PATIENT
  Age: 66 Year
  Sex: Female
  Weight: 70.31 kg

DRUGS (1)
  1. CORGARD [Suspect]
     Active Substance: NADOLOL
     Indication: Hypertension

REACTIONS (3)
  - Palpitations [Unknown]
  - Tremor [Unknown]
  - Product dose omission issue [Unknown]
